FAERS Safety Report 6745329-7 (Version None)
Quarter: 2010Q2

REPORT INFORMATION
  Report Type: 
  Country: None (occurrence: None)
  Receive Date: 20100528
  Receipt Date: 20100519
  Transmission Date: 20101027
  Serious: No
  Sender: FDA-Public Use
  Company Number: US-BIOGENIDEC-2010BI017184

PATIENT
  Age: 25 Year
  Sex: Female

DRUGS (4)
  1. TYSABRI [Suspect]
     Indication: MULTIPLE SCLEROSIS
     Route: 042
     Dates: start: 20081126, end: 20100109
  2. TYSABRI [Suspect]
     Route: 042
     Dates: start: 20100504
  3. AVONEX [Concomitant]
     Indication: MULTIPLE SCLEROSIS
     Route: 030
     Dates: start: 20010706
  4. AVONEX [Concomitant]
     Route: 030
     Dates: start: 20081101

REACTIONS (1)
  - MALAISE [None]
